FAERS Safety Report 14720419 (Version 1)
Quarter: 2018Q2

REPORT INFORMATION
  Report Type: Spontaneous
  Country: ES (occurrence: ES)
  Receive Date: 20180405
  Receipt Date: 20180405
  Transmission Date: 20180711
  Serious: Yes (Other)
  Sender: FDA-Public Use
  Company Number: ES-AMGEN-ESPSP2018046146

PATIENT
  Age: 21 Year
  Sex: Female

DRUGS (3)
  1. PROCORALAN [Suspect]
     Active Substance: IVABRADINE
     Indication: SINUS TACHYCARDIA
     Dosage: 7.5 MG, UNK
     Route: 048
     Dates: start: 201502, end: 20170427
  2. OMEPRAZOLE. [Concomitant]
     Active Substance: OMEPRAZOLE
     Indication: PRODUCT USED FOR UNKNOWN INDICATION
     Dosage: UNK
  3. DIENOGEST W/ETHINYLESTRADIOL [Concomitant]
     Indication: DYSMENORRHOEA
     Dosage: UNK
     Dates: start: 201203, end: 201707

REACTIONS (4)
  - Vitreous floaters [Recovered/Resolved]
  - Off label use [Unknown]
  - Optic neuritis [Recovering/Resolving]
  - Photopsia [Recovered/Resolved]

NARRATIVE: CASE EVENT DATE: 2017
